FAERS Safety Report 12143171 (Version 6)
Quarter: 2016Q3

REPORT INFORMATION
  Report Type: Report from Study
  Country: US (occurrence: US)
  Receive Date: 20160304
  Receipt Date: 20160922
  Transmission Date: 20161109
  Serious: Yes (Hospitalization)
  Sender: FDA-Public Use
  Company Number: US-ABBVIE-16K-163-1568667-00

PATIENT
  Age: 52 Year
  Sex: Female

DRUGS (3)
  1. HUMIRA [Suspect]
     Active Substance: ADALIMUMAB
     Indication: RHEUMATOID ARTHRITIS
     Route: 058
     Dates: start: 201510, end: 20160213
  2. METHOTREXATE. [Suspect]
     Active Substance: METHOTREXATE
     Indication: RHEUMATOID ARTHRITIS
     Dosage: DIVIDED DOSE (UNKNOWN MG) ON SAT AND SUN
     Route: 065
  3. PREDNISONE. [Concomitant]
     Active Substance: PREDNISONE
     Indication: RHEUMATOID ARTHRITIS
     Route: 048

REACTIONS (19)
  - Hypersomnia [Unknown]
  - Fall [Recovering/Resolving]
  - Pyrexia [Unknown]
  - Blood pressure decreased [Recovered/Resolved]
  - Renal failure [Recovering/Resolving]
  - Abdominal pain [Recovered/Resolved]
  - Drug ineffective [Not Recovered/Not Resolved]
  - Intra-abdominal haematoma [Recovering/Resolving]
  - Rash macular [Unknown]
  - Nausea [Unknown]
  - Alopecia [Recovered/Resolved]
  - Loss of consciousness [Unknown]
  - Sepsis [Recovered/Resolved]
  - Rheumatoid arthritis [Not Recovered/Not Resolved]
  - Tibia fracture [Recovering/Resolving]
  - Disseminated intravascular coagulation [Recovered/Resolved]
  - Anaemia [Recovered/Resolved]
  - Contusion [Recovering/Resolving]
  - Cataract [Not Recovered/Not Resolved]

NARRATIVE: CASE EVENT DATE: 201510
